FAERS Safety Report 19840882 (Version 1)
Quarter: 2021Q3

REPORT INFORMATION
  Report Type: Spontaneous
  Country: DE (occurrence: DE)
  Receive Date: 20210916
  Receipt Date: 20210916
  Transmission Date: 20211014
  Serious: Yes (Death, Hospitalization)
  Sender: FDA-Public Use
  Company Number: DE-TEVA-2021-DE-1951583

PATIENT
  Age: 84 Year
  Sex: Female
  Weight: 70 kg

DRUGS (7)
  1. BISOPROLOL [Concomitant]
     Active Substance: BISOPROLOL
     Dosage: 2.5 MILLIGRAM DAILY; 5 MG, 0.5?0?0?0
  2. FENTANYL. [Concomitant]
     Active Substance: FENTANYL
     Dosage: 75 UG, SCHEME
  3. PANTOPRAZOL [Concomitant]
     Active Substance: PANTOPRAZOLE SODIUM
     Dosage: 40 MILLIGRAM DAILY; 1?0?0?0
  4. HYDROCHLOROTHIAZID [Suspect]
     Active Substance: HYDROCHLOROTHIAZIDE
     Dosage: 6.25 MILLIGRAM DAILY; 12.5 MG, 0.5?0?0?0:UNIT DOSE:6.25MILLIGRAM
  5. LEVOTHYROXIN?NATRIUM [Concomitant]
     Active Substance: LEVOTHYROXINE SODIUM
     Dosage: 50 MICROGRAM DAILY; 1?0?0?0
  6. KALIUMCITRAT [Concomitant]
     Active Substance: POTASSIUM CITRATE
     Dosage: 1 DOSAGE FORMS DAILY; 1?0?0?0
  7. AMITRIPTYLIN [Concomitant]
     Active Substance: AMITRIPTYLINE
     Dosage: 100 MILLIGRAM DAILY; 0?0?0?1

REACTIONS (9)
  - Systemic infection [Unknown]
  - Vomiting [Unknown]
  - General physical health deterioration [Unknown]
  - Nausea [Unknown]
  - Dehydration [Unknown]
  - Memory impairment [Unknown]
  - Hyponatraemia [Unknown]
  - Renal impairment [Unknown]
  - Hypotension [Unknown]
